FAERS Safety Report 7664380-6 (Version None)
Quarter: 2011Q3

REPORT INFORMATION
  Report Type: 
  Country: None (occurrence: None)
  Receive Date: 20110806
  Receipt Date: 20110121
  Transmission Date: 20111222
  Serious: No
  Sender: FDA-Public Use
  Company Number: US-ABBOTT-11P-163-0699877-00

PATIENT
  Sex: Female
  Weight: 61.744 kg

DRUGS (3)
  1. VITAMIN D [Concomitant]
     Indication: PRODUCT USED FOR UNKNOWN INDICATION
  2. NIASPAN [Suspect]
     Indication: HYPERLIPIDAEMIA
     Dosage: 500MG AT BEDTIME
     Dates: start: 20110118
  3. IBUPROFEN [Concomitant]
     Indication: PRODUCT USED FOR UNKNOWN INDICATION

REACTIONS (4)
  - INSOMNIA [None]
  - COUGH [None]
  - NASOPHARYNGITIS [None]
  - SNEEZING [None]
